FAERS Safety Report 13828750 (Version 1)
Quarter: 2017Q3

REPORT INFORMATION
  Report Type: Spontaneous
  Country: US (occurrence: US)
  Receive Date: 20170803
  Receipt Date: 20170803
  Transmission Date: 20171127
  Serious: Yes (Other)
  Sender: FDA-Public Use
  Company Number: US-TEVA-766211USA

PATIENT
  Sex: Female

DRUGS (2)
  1. NEXT CHOICE [Suspect]
     Active Substance: LEVONORGESTREL
     Indication: POST COITAL CONTRACEPTION
     Route: 065
     Dates: start: 20170325, end: 20170325
  2. NEXT CHOICE [Suspect]
     Active Substance: LEVONORGESTREL
     Route: 065
     Dates: start: 20170327, end: 20170327

REACTIONS (3)
  - Vaginal haemorrhage [Not Recovered/Not Resolved]
  - Pregnancy after post coital contraception [Unknown]
  - Vaginal discharge [Not Recovered/Not Resolved]

NARRATIVE: CASE EVENT DATE: 201704
